FAERS Safety Report 6190661-1 (Version None)
Quarter: 2009Q2

REPORT INFORMATION
  Report Type: 
  Country: None (occurrence: None)
  Receive Date: 20090514
  Receipt Date: 20090504
  Transmission Date: 20091009
  Serious: Yes (Other)
  Sender: FDA-Public Use
  Company Number: US-PFIZER INC-2009202480

PATIENT
  Sex: Female
  Weight: 56.689 kg

DRUGS (4)
  1. GEODON [Suspect]
     Indication: DEPRESSION
     Dosage: 2X/DAY, EVERY DAY
     Dates: start: 20090301, end: 20090414
  2. BENADRYL [Suspect]
     Dosage: UNK
     Dates: start: 20090101
  3. AMBIEN [Suspect]
     Indication: TREMOR
     Dates: start: 20090101
  4. LITHIUM CARBONATE [Concomitant]
     Indication: DEPRESSION
     Dosage: UNK

REACTIONS (10)
  - AGITATION [None]
  - DYSPNOEA [None]
  - HEART RATE INCREASED [None]
  - HYPERHIDROSIS [None]
  - HYPERTENSION [None]
  - PALPITATIONS [None]
  - PERIORBITAL HAEMATOMA [None]
  - SOMNOLENCE [None]
  - SWELLING FACE [None]
  - TREMOR [None]
